FAERS Safety Report 7908956-7 (Version None)
Quarter: 2011Q4

REPORT INFORMATION
  Report Type: 
  Country: None (occurrence: None)
  Receive Date: 20111110
  Receipt Date: 20111110
  Transmission Date: 20120403
  Serious: Yes (Death, Hospitalization)
  Sender: FDA-Public Use
  Company Number: None

PATIENT
  Sex: Male
  Weight: 44.4 kg

DRUGS (7)
  1. PEG-L-ASPARAGINASE (K-H) [Suspect]
     Dosage: 7000 IU
     Dates: end: 20111021
  2. METHOTREXATE [Suspect]
     Dosage: 45 MG
     Dates: end: 20111014
  3. CYCLOPHOSPHAMIDE [Suspect]
     Dosage: 1400 MG
     Dates: end: 20111007
  4. VINCRISTINE SULFATE [Suspect]
     Dosage: 8 MG
     Dates: end: 20111021
  5. CYTARABINE [Suspect]
     Dosage: 840 MG
     Dates: end: 20111017
  6. DOXORUBICIN HCL [Suspect]
     Dosage: 105 MG
     Dates: end: 20110920
  7. DEXAMETHASONE [Suspect]
     Dosage: 196 MG
     Dates: end: 20110926

REACTIONS (7)
  - FEBRILE NEUTROPENIA [None]
  - FUNGAL INFECTION [None]
  - THROMBOCYTOPENIA [None]
  - CEREBRAL ISCHAEMIA [None]
  - ANAL ULCER [None]
  - HYPERTENSION [None]
  - SEPTIC EMBOLUS [None]
